FAERS Safety Report 9003234 (Version 1)
Quarter: 2013Q1

REPORT INFORMATION
  Report Type: Spontaneous
  Country: US (occurrence: US)
  Receive Date: 20130108
  Receipt Date: 20130108
  Transmission Date: 20140127
  Serious: Yes (Death)
  Sender: FDA-Public Use
  Company Number: US-BAYER-2013-001177

PATIENT
  Age: 43 Year
  Sex: Female

DRUGS (10)
  1. DIPHENHYDRAMINE HYDROCHLORIDE [Suspect]
     Route: 048
  2. DIPHENHYDRAMINE HYDROCHLORIDE [Suspect]
     Route: 061
  3. FENTANYL [Suspect]
     Route: 048
  4. FENTANYL [Suspect]
     Route: 061
  5. TRAMADOL [Suspect]
     Route: 048
  6. TRAMADOL [Suspect]
     Route: 061
  7. CITALOPRAM [Suspect]
     Route: 048
  8. CITALOPRAM [Suspect]
     Route: 061
  9. TRAZODONE [Suspect]
     Route: 048
  10. TRAZODONE [Suspect]
     Route: 061

REACTIONS (2)
  - Drug abuse [Fatal]
  - Intentional overdose [Fatal]
